FAERS Safety Report 8821309 (Version 4)
Quarter: 2013Q3

REPORT INFORMATION
  Report Type: Spontaneous
  Country: US (occurrence: US)
  Receive Date: 20121002
  Receipt Date: 20130802
  Transmission Date: 20140515
  Serious: Yes (Other)
  Sender: FDA-Public Use
  Company Number: US-ASTRAZENECA-2012SE72970

PATIENT
  Age: 66 Year
  Sex: Male
  Weight: 90.3 kg

DRUGS (14)
  1. NEXIUM [Suspect]
     Indication: GASTROOESOPHAGEAL REFLUX DISEASE
     Route: 048
     Dates: start: 2009, end: 20130722
  2. BRILINTA [Suspect]
     Indication: STENT PLACEMENT
     Route: 048
     Dates: start: 201201
  3. METOPROLOL TARTRATE [Suspect]
     Indication: DRUG THERAPY
     Route: 048
     Dates: start: 201201
  4. PANTOPRAZOLE [Concomitant]
     Indication: GASTROOESOPHAGEAL REFLUX DISEASE
     Route: 048
     Dates: start: 20130723
  5. TRAZDONE [Concomitant]
     Indication: SLEEP DISORDER
     Route: 048
     Dates: start: 201110
  6. ATORVASTATIN [Concomitant]
     Indication: BLOOD CHOLESTEROL ABNORMAL
     Route: 048
     Dates: start: 201206
  7. RANITIDINE [Concomitant]
     Indication: GASTROOESOPHAGEAL REFLUX DISEASE
     Route: 048
     Dates: start: 201207
  8. ISOSORBIDE MONONITRATE [Concomitant]
     Indication: ANGINA PECTORIS
     Route: 048
     Dates: start: 201110
  9. LOSARTAN [Concomitant]
     Indication: BLOOD PRESSURE ABNORMAL
     Route: 048
     Dates: start: 201107
  10. GLIMIPIRIDE [Concomitant]
     Indication: BLOOD GLUCOSE ABNORMAL
     Route: 048
     Dates: start: 20130712
  11. LYRICA [Concomitant]
     Indication: NEUROPATHY PERIPHERAL
     Route: 048
     Dates: start: 20130712
  12. METHOCARBAMOL [Concomitant]
     Indication: PAIN IN EXTREMITY
     Route: 048
     Dates: start: 201201
  13. NITROSTAT [Concomitant]
     Indication: CHEST PAIN
     Route: 050
     Dates: start: 2004
  14. OXYCODONE [Concomitant]
     Indication: BACK PAIN
     Dosage: 7.5/325 MG PRN
     Route: 048
     Dates: start: 201304

REACTIONS (10)
  - Arterial occlusive disease [Unknown]
  - Stress [Unknown]
  - Gastrooesophageal reflux disease [Unknown]
  - Sleep disorder due to a general medical condition [Unknown]
  - Malaise [Unknown]
  - Back pain [Unknown]
  - Gastrooesophageal reflux disease [Unknown]
  - Food intolerance [Unknown]
  - Adverse event [Unknown]
  - Drug dose omission [Unknown]
